FAERS Safety Report 24416522 (Version 1)
Quarter: 2024Q4

REPORT INFORMATION
  Report Type: Spontaneous
  Country: US (occurrence: US)
  Receive Date: 20241009
  Receipt Date: 20241009
  Transmission Date: 20250114
  Serious: Yes (Hospitalization)
  Sender: AMGEN
  Company Number: US-AMGEN-USASP2024195636

PATIENT
  Age: 75 Year
  Sex: Female

DRUGS (4)
  1. PREDNISONE [Suspect]
     Active Substance: PREDNISONE
     Indication: End stage renal disease
     Dosage: UNK (MAINTENANCE)
     Route: 065
  2. MYCOPHENOLIC ACID [Concomitant]
     Active Substance: MYCOPHENOLIC ACID
     Dosage: UNK (MAINTENANCE)
  3. TACROLIMUS [Concomitant]
     Active Substance: TACROLIMUS
     Dosage: UNK (MAINTENANCE)
  4. THYMOGLOBULIN [Concomitant]
     Active Substance: LAPINE T-LYMPHOCYTE IMMUNE GLOBULIN

REACTIONS (3)
  - Deep vein thrombosis [Unknown]
  - Renal vein thrombosis [Recovered/Resolved]
  - Renal tubular necrosis [Recovered/Resolved]
